FAERS Safety Report 6731367-7 (Version None)
Quarter: 2010Q2

REPORT INFORMATION
  Report Type: 
  Country: None (occurrence: None)
  Receive Date: 20100518
  Receipt Date: 20100505
  Transmission Date: 20101027
  Serious: Yes (Disabling)
  Sender: FDA-Public Use
  Company Number: -SANOFI-AVENTIS-2010SA026366

PATIENT
  Age: 70 Year
  Sex: Male

DRUGS (8)
  1. ERYTHROMYCIN [Suspect]
     Indication: CELLULITIS
     Route: 048
  2. METRONIDAZOLE [Interacting]
     Route: 048
  3. ACETYLSALICYLIC ACID [Interacting]
  4. CIPROFLOXACIN [Interacting]
     Route: 048
  5. CLOPIDOGREL BISULFATE [Interacting]
  6. WARFARIN SODIUM [Suspect]
     Indication: PULMONARY EMBOLISM
  7. MEROPENEM [Concomitant]
     Route: 042
  8. TEICOPLANIN SODIUM [Concomitant]
     Route: 030

REACTIONS (4)
  - DRUG INTERACTION [None]
  - HYPHAEMA [None]
  - INTERNATIONAL NORMALISED RATIO INCREASED [None]
  - INTRAOCULAR PRESSURE INCREASED [None]
